FAERS Safety Report 17277395 (Version 1)
Quarter: 2020Q1

REPORT INFORMATION
  Report Type: Spontaneous
  Country: US (occurrence: US)
  Receive Date: 20200116
  Receipt Date: 20200116
  Transmission Date: 20200409
  Serious: Yes (Other)
  Sender: FDA-Public Use
  Company Number: None

PATIENT
  Age: 67 Year
  Sex: Female
  Weight: 64.8 kg

DRUGS (16)
  1. COLACE [Concomitant]
     Active Substance: DOCUSATE SODIUM
  2. CALCIUM WITH D3 [Concomitant]
  3. MLTI-VIT [Concomitant]
  4. ASA [Concomitant]
     Active Substance: ASPIRIN
  5. ZOCOR [Concomitant]
     Active Substance: SIMVASTATIN
  6. ANASTROZOLE. [Concomitant]
     Active Substance: ANASTROZOLE
  7. PROBIOTIC [Concomitant]
     Active Substance: PROBIOTICS NOS
  8. CELEBREX [Concomitant]
     Active Substance: CELECOXIB
  9. LISINOPRIL. [Concomitant]
     Active Substance: LISINOPRIL
  10. VALTREX [Concomitant]
     Active Substance: VALACYCLOVIR HYDROCHLORIDE
  11. FOSAMAX [Suspect]
     Active Substance: ALENDRONATE SODIUM
     Indication: OSTEOPOROSIS
     Dosage: ?          QUANTITY:1 TABLET(S);OTHER FREQUENCY:WEEKLY;?
     Route: 048
     Dates: start: 20190722, end: 20191004
  12. VITAMIN B COMPLEX [Concomitant]
     Active Substance: CYANOCOBALAMIN\DEXPANTHENOL\NIACINAMIDE\PYRIDOXINE HYDROCHLORIDE\RIBOFLAVIN 5^-PHOSPHATE SODIUM\THIAMINE HYDROCHLORIDE\VITAMIN B COMPLEX
  13. METAMUCIL [Concomitant]
     Active Substance: PLANTAGO SEED
  14. PROLIA [Concomitant]
     Active Substance: DENOSUMAB
  15. FISH OIL [Concomitant]
     Active Substance: FISH OIL
  16. ZYRTEC [Concomitant]
     Active Substance: CETIRIZINE HYDROCHLORIDE

REACTIONS (2)
  - Urticaria [None]
  - Abdominal discomfort [None]

NARRATIVE: CASE EVENT DATE: 20190801
